FAERS Safety Report 7905580 (Version 3)
Quarter: 2013Q4

REPORT INFORMATION
  Report Type: Spontaneous
  Country: US (occurrence: US)
  Receive Date: 20110419
  Receipt Date: 20131113
  Transmission Date: 20140711
  Serious: Yes (Hospitalization, Other)
  Sender: FDA-Public Use
  Company Number: US-BAYER-2011-028229

PATIENT
  Age: 37 Year
  Sex: Female
  Weight: 106.58 kg

DRUGS (4)
  1. YAZ [Suspect]
     Indication: CONTRACEPTION
     Dosage: UNK
     Dates: start: 20061213, end: 20070816
  2. MVI [Concomitant]
     Dosage: UNK
     Dates: start: 20100618
  3. VITAMIN B COMPLEX [Concomitant]
     Dosage: UNK
     Dates: start: 20100618
  4. CALCIUM [Concomitant]
     Dosage: UNK
     Dates: start: 20100618

REACTIONS (6)
  - Cholelithiasis [None]
  - Cholecystitis acute [None]
  - Pancreatitis [None]
  - Anhedonia [None]
  - Pain [None]
  - Anxiety [None]
